FAERS Safety Report 6484432-6 (Version None)
Quarter: 2009Q4

REPORT INFORMATION
  Report Type: 
  Country: None (occurrence: None)
  Receive Date: 20091209
  Receipt Date: 20091125
  Transmission Date: 20100525
  Serious: Yes (Life-Threatening, Hospitalization)
  Sender: FDA-Public Use
  Company Number: DE-MYLANLABS-2009S1010206

PATIENT
  Age: 69 Year
  Sex: Female
  Weight: 52 kg

DRUGS (12)
  1. CITALOPRAM HYDROBROMIDE [Interacting]
     Indication: PSYCHOTIC DISORDER DUE TO A GENERAL MEDICAL CONDITION
     Route: 048
     Dates: start: 20080301
  2. VOLTAREN [Interacting]
     Indication: BONE PAIN
     Route: 048
     Dates: start: 20080301
  3. ASPIRIN [Suspect]
     Indication: ISCHAEMIC HEART DISEASE PROPHYLAXIS
     Route: 048
     Dates: start: 20080301, end: 20080530
  4. CYANOCOBALAMIN W/FOLIC ACID [Interacting]
     Indication: DRUG USE FOR UNKNOWN INDICATION
     Route: 048
     Dates: start: 20080301, end: 20080530
  5. EXELON [Interacting]
     Indication: DRUG USE FOR UNKNOWN INDICATION
     Route: 048
     Dates: start: 20080301
  6. CLOZAPINE [Concomitant]
     Indication: PSYCHOTIC DISORDER DUE TO A GENERAL MEDICAL CONDITION
     Route: 048
     Dates: start: 20080301
  7. NEXIUM [Concomitant]
     Indication: GASTRITIS
     Route: 048
     Dates: start: 20080301
  8. MADOPAR [Concomitant]
     Indication: PARKINSON'S DISEASE
     Dosage: 1DF= 100MG LEVODOPA + 25MG BENSERAZID
     Route: 048
     Dates: start: 20080301
  9. MOTILIUM [Concomitant]
     Indication: BONE PAIN
     Route: 048
     Dates: start: 20080301
  10. DURAGESIC-100 [Concomitant]
     Indication: BONE PAIN
     Dosage: APPLIKATION EINES NEUEN PFLASTERS ALLE 3 TAGE
     Route: 062
     Dates: start: 20080301, end: 20080530
  11. CALCIMAGON-D3 [Concomitant]
     Indication: OSTEOPOROSIS
     Dosage: 1DF= 500MG CALCIUM + 400IU COLECALCIFEROL
     Route: 048
     Dates: start: 20080301
  12. LACTULOSE [Concomitant]
     Indication: CONSTIPATION
     Route: 048
     Dates: start: 20080301

REACTIONS (2)
  - DRUG INTERACTION [None]
  - DUODENAL ULCER HAEMORRHAGE [None]
